FAERS Safety Report 6421380-1 (Version None)
Quarter: 2009Q4

REPORT INFORMATION
  Report Type: 
  Country: None (occurrence: None)
  Receive Date: 20091030
  Receipt Date: 20091027
  Transmission Date: 20100525
  Serious: Yes (Life-Threatening, Other)
  Sender: FDA-Public Use
  Company Number: PHEH2009US14512

PATIENT
  Sex: Female

DRUGS (1)
  1. TEKTURNA [Suspect]

REACTIONS (8)
  - ASTHENIA [None]
  - BACK PAIN [None]
  - BLOOD POTASSIUM INCREASED [None]
  - FEELING ABNORMAL [None]
  - HEADACHE [None]
  - OXYGEN SATURATION DECREASED [None]
  - RENAL IMPAIRMENT [None]
  - VISUAL IMPAIRMENT [None]
